FAERS Safety Report 5766874-7 (Version None)
Quarter: 2008Q2

REPORT INFORMATION
  Report Type: 
  Country: None (occurrence: None)
  Receive Date: 20080612
  Receipt Date: 20080602
  Transmission Date: 20081010
  Serious: Yes (Hospitalization)
  Sender: FDA-Public Use
  Company Number: CL-ABBOTT-08P-034-0451801-00

PATIENT
  Sex: Male
  Weight: 49.8 kg

DRUGS (4)
  1. KALETRA [Suspect]
     Indication: HIV INFECTION
     Dosage: 800/200 MILLIGRAMS DAILY TOTAL; 400/100 MILLIGRAMS TWO TIMES PER DAY
     Route: 048
     Dates: start: 20071201
  2. KALETRA [Suspect]
     Indication: HIV INFECTION
     Dates: start: 20060914, end: 20071201
  3. DIDANOSINE [Concomitant]
     Indication: HIV INFECTION
     Route: 048
     Dates: start: 20060914
  4. ZIDOVUDINE [Concomitant]
     Indication: HIV INFECTION
     Route: 048
     Dates: start: 20060914

REACTIONS (1)
  - PNEUMONIA [None]
